FAERS Safety Report 4378653-6 (Version None)
Quarter: 2004Q2

REPORT INFORMATION
  Report Type: 
  Country: None (occurrence: None)
  Receive Date: 20040610
  Receipt Date: 20040601
  Transmission Date: 20050107
  Serious: Yes (Hospitalization, Other)
  Sender: FDA-Public Use
  Company Number: HQWYE150201JUN04

PATIENT
  Age: 61 Year
  Sex: Female

DRUGS (3)
  1. MINOCYCLINE HCL [Suspect]
     Indication: NASOPHARYNGITIS
     Dosage: 200 MG DAILY
     Route: 042
     Dates: start: 20040528, end: 20040528
  2. KASHIWADOL   (CHONDROITIN SULFATE SODIUM/SALICYLATE SODIUM) [Concomitant]
  3. ISEPACIN (ISEPAMICIN SULFATE) [Concomitant]

REACTIONS (1)
  - SHOCK [None]
